FAERS Safety Report 9310003 (Version 1)
Quarter: 2013Q2

REPORT INFORMATION
  Report Type: Report from Study
  Country: PL (occurrence: PL)
  Receive Date: 20130527
  Receipt Date: 20130527
  Transmission Date: 20140414
  Serious: Yes (Hospitalization)
  Sender: FDA-Public Use
  Company Number: PL-BIOGENIDEC-2012BI009393

PATIENT
  Age: 55 Year
  Sex: Female

DRUGS (9)
  1. BG00012 [Suspect]
     Indication: MULTIPLE SCLEROSIS
     Dates: start: 20110318
  2. CALCITONIN [Concomitant]
     Indication: OSTEOPOROSIS
     Route: 030
     Dates: start: 201103
  3. PROTELOS [Concomitant]
     Route: 048
     Dates: start: 2003
  4. MOVALIS [Concomitant]
     Indication: ARTHRALGIA
     Route: 048
     Dates: start: 2007
  5. SIRDALUD [Concomitant]
     Indication: MUSCLE SPASTICITY
     Route: 048
     Dates: start: 2008
  6. BACLOFEN [Concomitant]
     Indication: MYALGIA
     Route: 048
     Dates: start: 20080720
  7. ELTROXIN [Concomitant]
     Indication: HYPOTHYROIDISM
     Route: 048
     Dates: start: 2004
  8. DITROPAN [Concomitant]
     Indication: URINARY INCONTINENCE
     Route: 048
     Dates: start: 20100607
  9. TRUSOPT [Concomitant]
     Indication: GLAUCOMA
     Route: 048
     Dates: start: 2010

REACTIONS (1)
  - Tibia fracture [Recovered/Resolved]
